FAERS Safety Report 4902126-2 (Version None)
Quarter: 2006Q1

REPORT INFORMATION
  Report Type: 
  Country: None (occurrence: None)
  Receive Date: 20060206
  Receipt Date: 20060201
  Transmission Date: 20060701
  Serious: Yes (Hospitalization)
  Sender: FDA-Public Use
  Company Number: US-MERCK-0602USA00284

PATIENT
  Age: 54 Year
  Sex: Male
  Weight: 102 kg

DRUGS (8)
  1. VIOXX [Suspect]
     Indication: SPONDYLITIS
     Route: 048
     Dates: start: 20000101, end: 20040901
  2. VIOXX [Suspect]
     Route: 048
     Dates: start: 20000101, end: 20040901
  3. LIPITOR [Concomitant]
     Indication: BLOOD CHOLESTEROL INCREASED
     Route: 065
  4. WELLBUTRIN [Concomitant]
     Route: 065
  5. CLARITIN [Concomitant]
     Route: 065
  6. HYDROCODONE HYDROCHLORIDE [Concomitant]
     Route: 065
  7. FLOMAX (MORNIFLUMATE) [Concomitant]
     Route: 065
  8. METHYLPREDNISOLONE [Concomitant]
     Route: 065

REACTIONS (10)
  - ARRHYTHMIA [None]
  - BIOPSY VOCAL CORD [None]
  - EMOTIONAL DISTRESS [None]
  - HYPERTENSION [None]
  - MYOCARDIAL INFARCTION [None]
  - OBSESSIVE-COMPULSIVE PERSONALITY DISORDER [None]
  - PANIC ATTACK [None]
  - ROAD TRAFFIC ACCIDENT [None]
  - SWELLING [None]
  - VOCAL CORD DISORDER [None]
